FAERS Safety Report 4918682-4 (Version None)
Quarter: 2006Q1

REPORT INFORMATION
  Report Type: 
  Country: None (occurrence: None)
  Receive Date: 20060222
  Receipt Date: 20050812
  Transmission Date: 20060701
  Serious: Yes (Death)
  Sender: FDA-Public Use
  Company Number: ES-ABBOTT-05P-144-0308414-00

PATIENT
  Age: 72 Year
  Sex: Male

DRUGS (13)
  1. ZEMPLAR [Suspect]
     Indication: HYPERPARATHYROIDISM SECONDARY
     Dosage: 3 DOSES WEEKLY, INTRAVENOUS
     Dates: start: 20050502, end: 20050519
  2. ZEMPLAR [Suspect]
     Indication: RENAL FAILURE CHRONIC
  3. CALCIUM CARBONATE [Concomitant]
     Indication: RENAL FAILURE
     Route: 048
     Dates: start: 20050518, end: 20050810
  4. ETHAMBUTOL DIHYDROCHLORIDE [Concomitant]
     Indication: TUBERCULOSIS
     Route: 048
     Dates: start: 20050518, end: 20050810
  5. RISPERIDONE [Concomitant]
     Indication: INSOMNIA
     Route: 048
     Dates: start: 20050518, end: 20050810
  6. OMEPRAZOLE [Concomitant]
     Indication: DYSPEPSIA
     Route: 048
     Dates: start: 20050518, end: 20050810
  7. LEVOFLOXACINO [Concomitant]
     Indication: TUBERCULOSIS
     Route: 048
     Dates: start: 20050518, end: 20050810
  8. ISONIAZIDA [Concomitant]
     Indication: TUBERCULOSIS
     Route: 048
     Dates: start: 20050617, end: 20050810
  9. LERCANIDIPINO [Concomitant]
     Indication: DRUG USE FOR UNKNOWN INDICATION
     Route: 065
     Dates: start: 20021218
  10. FUROSEMIDA [Concomitant]
     Indication: DRUG USE FOR UNKNOWN INDICATION
     Route: 065
     Dates: start: 20000101
  11. ISONICIDA [Concomitant]
     Indication: DRUG USE FOR UNKNOWN INDICATION
     Route: 065
     Dates: start: 20050119
  12. PIAZINAMIDA [Concomitant]
     Indication: DRUG USE FOR UNKNOWN INDICATION
     Route: 065
     Dates: start: 20050119
  13. SULFATO FERROSO [Concomitant]
     Indication: DRUG USE FOR UNKNOWN INDICATION
     Route: 065
     Dates: start: 20050812

REACTIONS (2)
  - CARDIAC ARREST [None]
  - HYPERPHOSPHATAEMIA [None]
